FAERS Safety Report 4307308-9 (Version None)
Quarter: 2004Q1

REPORT INFORMATION
  Report Type: 
  Country: None (occurrence: None)
  Receive Date: 20040226
  Receipt Date: 20040220
  Transmission Date: 20041129
  Serious: Yes (Hospitalization, Other)
  Sender: FDA-Public Use
  Company Number: US-SHR-03-016863

PATIENT
  Age: 15 Month
  Sex: Male
  Weight: 10.9 kg

DRUGS (2)
  1. BETAPACE [Suspect]
     Indication: ATRIAL TACHYCARDIA
     Dosage: SEE IMAGE
     Route: 048
     Dates: start: 20020901, end: 20031020
  2. BETAPACE [Suspect]
     Indication: ATRIAL TACHYCARDIA
     Dosage: SEE IMAGE
     Route: 048
     Dates: start: 20031021

REACTIONS (3)
  - BLOOD GLUCOSE DECREASED [None]
  - BRADYCARDIA [None]
  - COMA [None]
